FAERS Safety Report 11718244 (Version 1)
Quarter: 2015Q4

REPORT INFORMATION
  Report Type: Spontaneous
  Country: US (occurrence: None)
  Receive Date: 20151109
  Receipt Date: 20151109
  Transmission Date: 20160304
  Serious: Yes (Disabling, Other)
  Sender: FDA-Public Use
  Company Number: None

PATIENT
  Age: 54 Year
  Sex: Female
  Weight: 49.9 kg

DRUGS (9)
  1. VITAMIN D [Concomitant]
     Active Substance: CHOLECALCIFEROL
  2. HEALTHY HANDS AND FEET [Concomitant]
  3. DOCETAXEL. [Suspect]
     Active Substance: DOCETAXEL
     Indication: BREAST CANCER
     Route: 042
     Dates: start: 20111018, end: 20111018
  4. AUGMENTIN [Concomitant]
     Active Substance: AMOXICILLIN\CLAVULANATE POTASSIUM
  5. TRAMADOL. [Concomitant]
     Active Substance: TRAMADOL
  6. BONE-UP [Concomitant]
  7. FINITI [Concomitant]
  8. GUARANA [Concomitant]
  9. TAMOXIFEN [Concomitant]
     Active Substance: TAMOXIFEN

REACTIONS (7)
  - Asphyxia [None]
  - Lip oedema [None]
  - Oedema peripheral [None]
  - Activities of daily living impaired [None]
  - Glossodynia [None]
  - Skin exfoliation [None]
  - Scleral disorder [None]

NARRATIVE: CASE EVENT DATE: 20111018
